FAERS Safety Report 4596367-4 (Version None)
Quarter: 2005Q1

REPORT INFORMATION
  Report Type: 
  Country: None (occurrence: None)
  Receive Date: 20050228
  Receipt Date: 20050214
  Transmission Date: 20050727
  Serious: Yes (Other)
  Sender: FDA-Public Use
  Company Number: 2004121853

PATIENT
  Age: 64 Year
  Sex: Female
  Weight: 104 kg

DRUGS (10)
  1. CELEBREX [Suspect]
     Indication: ILL-DEFINED DISORDER
     Dosage: 1 TABLET (DAILY)
     Dates: start: 20040214, end: 20040101
  2. ATENOLOL [Concomitant]
  3. LISINOPRIL HYDRATE [Concomitant]
  4. INDAPAMIDE [Concomitant]
  5. LEVOTHYROXINE SODIUM [Concomitant]
  6. ALENDRONATE SODIUM [Concomitant]
  7. CALCIUM CARBONATE/COLECALCIFEROL [Concomitant]
  8. CLOMIPRAMINE HCL [Concomitant]
  9. TRAVOPOST [Concomitant]
  10. BUSPIRONE HCL [Concomitant]

REACTIONS (1)
  - PAPILLOEDEMA [None]
